FAERS Safety Report 6374108-8 (Version None)
Quarter: 2009Q3

REPORT INFORMATION
  Report Type: 
  Country: None (occurrence: None)
  Receive Date: 20090924
  Receipt Date: 20090626
  Transmission Date: 20100115
  Serious: No
  Sender: FDA-Public Use
  Company Number: US-ASTRAZENECA-2009UW18040

PATIENT
  Age: 54 Year
  Sex: Male
  Weight: 108.9 kg

DRUGS (4)
  1. SEROQUEL [Suspect]
     Indication: SLEEP DISORDER
     Route: 048
     Dates: start: 20020101
  2. LEXAPRO [Concomitant]
     Indication: DEPRESSION
  3. LISINOPRIL AND HYDROCHLOROTHIAZIDE [Concomitant]
  4. OMEPRAZOLE [Concomitant]
     Indication: GASTROOESOPHAGEAL REFLUX DISEASE
     Route: 048

REACTIONS (4)
  - DRUG DOSE OMISSION [None]
  - HYPERTENSION [None]
  - INSOMNIA [None]
  - WEIGHT INCREASED [None]
